FAERS Safety Report 7732797-7 (Version None)
Quarter: 2011Q3

REPORT INFORMATION
  Report Type: 
  Country: None (occurrence: None)
  Receive Date: 20110901
  Receipt Date: 20110901
  Transmission Date: 20111222
  Serious: Yes (Life-Threatening)
  Sender: FDA-Public Use
  Company Number: None

PATIENT
  Age: 40 Year
  Sex: Female

DRUGS (1)
  1. REBIF [Suspect]
     Dosage: 44 MCG TIW SC
     Route: 058
     Dates: start: 20110708, end: 20110728

REACTIONS (2)
  - SUICIDAL IDEATION [None]
  - DEPRESSION [None]
